FAERS Safety Report 10408792 (Version 1)
Quarter: 2014Q3

REPORT INFORMATION
  Report Type: Report from Study
  Country: US (occurrence: US)
  Receive Date: 20140826
  Receipt Date: 20140826
  Transmission Date: 20150326
  Serious: Yes (Hospitalization)
  Sender: FDA-Public Use
  Company Number: PHEH2014US016782

PATIENT
  Age: 17 Year
  Sex: Male

DRUGS (8)
  1. PREVACID [Concomitant]
     Active Substance: LANSOPRAZOLE
     Dosage: UNK UKN, UNK
  2. ZITHROMAX [Concomitant]
     Active Substance: AZITHROMYCIN DIHYDRATE
     Dosage: UNK UKN, UNK
  3. TOBI PODHALER [Suspect]
     Active Substance: TOBRAMYCIN
     Indication: CYSTIC FIBROSIS
     Dosage: 112 MG, BID
     Route: 055
     Dates: start: 201309
  4. CIPRO [Concomitant]
     Active Substance: CIPROFLOXACIN HYDROCHLORIDE
     Dosage: UNK UKN, UNK
  5. PULMOZYME [Concomitant]
     Active Substance: DORNASE ALFA
     Dosage: UNK UKN, UNK
  6. SINGULAIR [Concomitant]
     Active Substance: MONTELUKAST SODIUM
     Dosage: UNK UKN, UNK
  7. CAYSTON [Concomitant]
     Active Substance: AZTREONAM
     Dosage: UNK UKN, UNK
  8. HYPERTONIC SALINE SOLUTION [Concomitant]
     Active Substance: SODIUM CHLORIDE
     Dosage: UNK UKN, UNK

REACTIONS (1)
  - Weight decreased [Unknown]

NARRATIVE: CASE EVENT DATE: 201408
